FAERS Safety Report 5809763-1 (Version None)
Quarter: 2008Q3

REPORT INFORMATION
  Report Type: 
  Country: None (occurrence: None)
  Receive Date: 20080708
  Receipt Date: 20070522
  Transmission Date: 20090109
  Serious: Yes (Other)
  Sender: FDA-Public Use
  Company Number: 2007050065

PATIENT
  Age: 18 Year
  Sex: Male

DRUGS (1)
  1. SOMA [Suspect]
     Indication: ILL-DEFINED DISORDER
     Dosage: IN
     Dates: start: 20070101

REACTIONS (1)
  - DRUG ABUSE [None]
